FAERS Safety Report 14318607 (Version 1)
Quarter: 2017Q4

REPORT INFORMATION
  Report Type: Spontaneous
  Country: US (occurrence: US)
  Receive Date: 20171222
  Receipt Date: 20171222
  Transmission Date: 20180321
  Serious: Yes (Hospitalization, Other)
  Sender: FDA-Public Use
  Company Number: US-MYLANLABS-2017M1078550

PATIENT
  Age: 84 Year
  Sex: Female

DRUGS (17)
  1. ASCORBIC ACID. [Interacting]
     Active Substance: ASCORBIC ACID
     Indication: PRODUCT USED FOR UNKNOWN INDICATION
     Dosage: UNK
     Route: 065
  2. ST. JOHN^S WORT [Interacting]
     Active Substance: ST. JOHN^S WORT
     Indication: PRODUCT USED FOR UNKNOWN INDICATION
     Dosage: 300, 3 TIMES/DAY
     Route: 065
  3. SIMVASTATIN. [Interacting]
     Active Substance: SIMVASTATIN
     Indication: PRODUCT USED FOR UNKNOWN INDICATION
     Dosage: 40 DAILY
     Route: 065
  4. CELECOXIB. [Interacting]
     Active Substance: CELECOXIB
     Indication: PRODUCT USED FOR UNKNOWN INDICATION
     Dosage: 200 TWICE DAILY
     Route: 065
  5. DILTIAZEM. [Suspect]
     Active Substance: DILTIAZEM
     Indication: PRODUCT USED FOR UNKNOWN INDICATION
     Dosage: 300 DAILY (EXTENDED-RELEASE )
     Route: 065
  6. GLUCOSAMINE [Interacting]
     Active Substance: GLUCOSAMINE
     Indication: PRODUCT USED FOR UNKNOWN INDICATION
     Dosage: UNK
     Route: 065
  7. AMITRIPTYLINE [Interacting]
     Active Substance: AMITRIPTYLINE
     Indication: PRODUCT USED FOR UNKNOWN INDICATION
     Dosage: 75 AT BEDTIME
     Route: 065
  8. ALENDRONATE [Interacting]
     Active Substance: ALENDRONATE SODIUM
     Indication: PRODUCT USED FOR UNKNOWN INDICATION
     Dosage: 10 DAILY
     Route: 065
  9. HYDROXYZINE [Interacting]
     Active Substance: HYDROXYZINE HYDROCHLORIDE
     Indication: PRODUCT USED FOR UNKNOWN INDICATION
     Dosage: 50 AT BEDTIME
     Route: 065
  10. NICOTINIC ACID [Interacting]
     Active Substance: NIACIN
     Indication: PRODUCT USED FOR UNKNOWN INDICATION
     Dosage: UNK
     Route: 065
  11. CINNAMON                           /01647501/ [Interacting]
     Active Substance: CINNAMON
     Indication: PRODUCT USED FOR UNKNOWN INDICATION
     Dosage: UNK
     Route: 065
  12. CHROMIUM [Interacting]
     Active Substance: CHROMIC CHLORIDE\CHROMIUM
     Indication: PRODUCT USED FOR UNKNOWN INDICATION
     Dosage: UNK
     Route: 065
  13. PIOGLITAZONE. [Interacting]
     Active Substance: PIOGLITAZONE
     Indication: PRODUCT USED FOR UNKNOWN INDICATION
     Dosage: 450 DAILY
     Route: 065
  14. METFORMIN [Interacting]
     Active Substance: METFORMIN HYDROCHLORIDE
     Indication: PRODUCT USED FOR UNKNOWN INDICATION
     Dosage: 850, 3 TIMES/DAY
     Route: 065
  15. GINKGO BILOBA [Interacting]
     Active Substance: GINKGO
     Indication: DEMENTIA ALZHEIMER^S TYPE
     Dosage: UNK
     Route: 065
  16. PAROXETINE. [Interacting]
     Active Substance: PAROXETINE
     Indication: PRODUCT USED FOR UNKNOWN INDICATION
     Dosage: 40 DAILY
     Route: 065
  17. GLIBENCLAMIDE [Interacting]
     Active Substance: GLYBURIDE
     Indication: PRODUCT USED FOR UNKNOWN INDICATION
     Dosage: 10 DAILY (EXTENDED-RELEASE)
     Route: 065

REACTIONS (7)
  - Drug interaction [Recovering/Resolving]
  - Fall [Recovering/Resolving]
  - Cognitive disorder [Recovering/Resolving]
  - Hip fracture [Recovering/Resolving]
  - Delirium [Recovering/Resolving]
  - Mobility decreased [Recovering/Resolving]
  - Dementia Alzheimer^s type [Recovering/Resolving]
